FAERS Safety Report 19998113 (Version 2)
Quarter: 2021Q4

REPORT INFORMATION
  Report Type: Spontaneous
  Country: US (occurrence: US)
  Receive Date: 20211026
  Receipt Date: 20211103
  Transmission Date: 20220303
  Serious: Yes (Other)
  Sender: FDA-Public Use
  Company Number: US-ALLERGAN-2135417US

PATIENT
  Sex: Female

DRUGS (4)
  1. UBRELVY [Suspect]
     Active Substance: UBROGEPANT
     Indication: Migraine
     Dosage: 50 MG, QD
     Dates: start: 20211013, end: 20211016
  2. CLONIDINE [Suspect]
     Active Substance: CLONIDINE
     Indication: Postural orthostatic tachycardia syndrome
     Dosage: 0.2 MG
  3. NURTEC ODT [Concomitant]
     Active Substance: RIMEGEPANT SULFATE
     Indication: Headache
  4. Nerve blocks [Concomitant]
     Indication: Headache
     Dosage: EVERY 6 WEEKS

REACTIONS (5)
  - Anaphylactic reaction [Recovered/Resolved]
  - Blood pressure decreased [Recovered/Resolved]
  - Lip swelling [Recovered/Resolved]
  - Throat tightness [Recovered/Resolved]
  - Heart rate decreased [Recovered/Resolved]

NARRATIVE: CASE EVENT DATE: 20211016
